FAERS Safety Report 8955347 (Version 1)
Quarter: 2012Q4

REPORT INFORMATION
  Report Type: 
  Country: US (occurrence: US)
  Receive Date: 20121207
  Receipt Date: 20121207
  Transmission Date: 20130627
  Serious: Yes (Death)
  Sender: FDA-Public Use
  Company Number: US-BRISTOL-MYERS SQUIBB COMPANY-17195553

PATIENT
  Age: 56 Year
  Sex: Female

DRUGS (6)
  1. TRAZODONE HCL [Suspect]
  2. LEVETIRACETAM [Suspect]
  3. MEPERIDINE [Suspect]
  4. NORDIAZEPAM [Suspect]
  5. MEPROBAMATE [Suspect]
  6. DIAZEPAM [Suspect]

REACTIONS (1)
  - Toxicity to various agents [Fatal]
